FAERS Safety Report 10011638 (Version 2)
Quarter: 2014Q2

REPORT INFORMATION
  Report Type: Report from Study
  Country: DE (occurrence: DE)
  Receive Date: 20140314
  Receipt Date: 20140411
  Transmission Date: 20141212
  Serious: Yes (Hospitalization)
  Sender: FDA-Public Use
  Company Number: DE-ABBVIE-14P-062-1210898-00

PATIENT
  Age: 55 Year
  Sex: Male
  Weight: 92 kg

DRUGS (7)
  1. KALETRA [Suspect]
     Indication: HIV INFECTION
     Dosage: 2X2
     Route: 048
     Dates: start: 20120911
  2. TRUVADA [Concomitant]
     Indication: HIV INFECTION
     Dates: start: 20121018, end: 20140302
  3. ISENTRESS [Concomitant]
     Indication: HIV INFECTION
     Dates: start: 20121018, end: 20140302
  4. FUZEON [Concomitant]
     Indication: HIV INFECTION
     Dates: start: 20120901, end: 20140302
  5. TAMSULOSIN [Concomitant]
     Indication: PRODUCT USED FOR UNKNOWN INDICATION
     Dates: end: 20140302
  6. DEKRISTOL [Concomitant]
     Indication: PRODUCT USED FOR UNKNOWN INDICATION
     Dates: start: 20121207, end: 20140302
  7. ZOPICLON [Concomitant]
     Indication: PRODUCT USED FOR UNKNOWN INDICATION
     Dates: start: 20130415, end: 20140302

REACTIONS (1)
  - Inguinal hernia [Recovered/Resolved]
